FAERS Safety Report 14513858 (Version 1)
Quarter: 2018Q1

REPORT INFORMATION
  Report Type: Spontaneous
  Country: US (occurrence: US)
  Receive Date: 20180209
  Receipt Date: 20180209
  Transmission Date: 20180509
  Serious: No
  Sender: FDA-Public Use
  Company Number: US-ALLERGAN-1754394US

PATIENT
  Age: 57 Year
  Sex: Female
  Weight: 56.24 kg

DRUGS (2)
  1. RESTASIS [Suspect]
     Active Substance: CYCLOSPORINE
     Indication: DRY EYE
     Dosage: 2 GTT, BID
     Route: 047
     Dates: start: 20170820, end: 20170909
  2. LEVOTHYROXINE. [Concomitant]
     Active Substance: LEVOTHYROXINE
     Indication: AUTOIMMUNE THYROIDITIS
     Dosage: UNK

REACTIONS (8)
  - Drug dose omission [Unknown]
  - Eye swelling [Unknown]
  - Ocular hyperaemia [Unknown]
  - Product packaging quantity issue [Unknown]
  - Foreign body sensation in eyes [Unknown]
  - Wrong technique in product usage process [Unknown]
  - Eye pain [Unknown]
  - Product container issue [Unknown]

NARRATIVE: CASE EVENT DATE: 20170910
